FAERS Safety Report 5293714-5 (Version None)
Quarter: 2007Q2

REPORT INFORMATION
  Report Type: 
  Country: None (occurrence: None)
  Receive Date: 20070405
  Receipt Date: 20070326
  Transmission Date: 20071010
  Serious: Yes (Death)
  Sender: FDA-Public Use
  Company Number: 2007RR-06170

PATIENT
  Age: 77 Year
  Sex: Male

DRUGS (22)
  1. ASPIRIN [Suspect]
     Dosage: 75 MG,
  2. ATORVASTATIN CALCIUM [Suspect]
     Dosage: 10 MG
  3. BECLOMETHASONE DIPROPIONATE [Suspect]
     Dosage: 50 UG, BID, RESPIRATORY
     Route: 055
  4. COMBIVENT METERED AEROSOL(SALBUTAMOL SULPHATE, IPRATROPIUM MONOHYDRATE [Suspect]
     Indication: CHRONIC OBSTRUCTIVE PULMONARY DISEASE
     Dosage: QID, RESPIRATORY
     Route: 055
     Dates: start: 20030617, end: 20040513
  5. DEXAMETHASONE TAB [Suspect]
     Dosage: 2 MG
  6. DILTIAZEM [Suspect]
     Dosage: 60 MG, BID
  7. DOSULEPIN(DOSULEPIN) [Suspect]
     Dosage: 75 MG, QD
  8. FRUMIL(AMILORIDE HYDROCHLORIDE, FUROSEMIDE) [Suspect]
  9. FUROSEMIDE [Suspect]
     Dosage: 80 MG, QD
  10. GAVISCON [Suspect]
     Dosage: 10 ML QID
  11. LACTULOSE [Suspect]
     Dosage: 3.35G
  12. LANSOPRAZOLE [Suspect]
     Dosage: 30 MG, QD
  13. METOCLOPRAMIDE(METCLOPRAMIDE) UNKNOWN [Suspect]
     Dosage: 10 MG TID
  14. NITROGLYCERIN [Suspect]
     Dosage: 400 MG
  15. NOZINAN(LEVOMEPROMAZINE HYDROCHLORIDE) [Suspect]
     Dosage: 25 MG, QID
  16. OXYCODONE HCL [Suspect]
     Dosage: 20 MG, BID
  17. OXYGEN(OXYGEN) [Suspect]
     Dosage: RESPIRATORY
     Route: 055
  18. SALBUTAMOL(SALBUTAMOL) UNKNOWN [Suspect]
     Dosage: 100 UG, PRN, RESPIRATORY
     Route: 055
  19. SPIRIVA [Suspect]
     Indication: CHRONIC OBSTRUCTIVE PULMONARY DISEASE
     Dosage: 18 UG, RESPIRATORY
     Route: 055
  20. SPIRONOLACTONE [Suspect]
     Dosage: 50 MG
  21. SYMBICORT [Suspect]
     Dosage: BID, RESPIRATORY
     Route: 055
  22. TEMAZEPAM [Suspect]
     Dosage: 10 MG, 1 DAYS

REACTIONS (1)
  - MESOTHELIOMA [None]
